FAERS Safety Report 14473449 (Version 2)
Quarter: 2021Q3

REPORT INFORMATION
  Report Type: Spontaneous
  Country: US (occurrence: US)
  Receive Date: 20180201
  Receipt Date: 20210702
  Transmission Date: 20211014
  Serious: Yes (Disabling)
  Sender: FDA-Public Use
  Company Number: US-TEVA-2018-US-853638

PATIENT
  Age: 49 Year
  Sex: Female

DRUGS (4)
  1. DOCETAXEL SANOFI AVENTIS [Suspect]
     Active Substance: DOCETAXEL
     Indication: BREAST CANCER FEMALE
     Dosage: 7 CYCLES, 3 DIFFERENT DRUGS USED IN SEQUENCE
     Route: 065
     Dates: start: 20140722, end: 20141105
  2. DOCETAXEL WINTHROP [Suspect]
     Active Substance: DOCETAXEL
     Indication: BREAST CANCER FEMALE
     Dosage: 7 CYCLES, 3 DIFFERENT DRUGS USED IN SEQUENCE
     Route: 065
     Dates: start: 20140722, end: 20141105
  3. CARBOPLATIN. [Concomitant]
     Active Substance: CARBOPLATIN
     Indication: BREAST CANCER FEMALE
     Dosage: 3 DIFFERENT DRUGS USED IN SEQUENCE
     Route: 065
  4. DOCETAXEL SAGENT [Suspect]
     Active Substance: DOCETAXEL
     Indication: BREAST CANCER FEMALE
     Dosage: 7 CYCLES, 3 DIFFERENT DRUGS USED IN SEQUENCE
     Route: 065
     Dates: start: 20140722, end: 20141105

REACTIONS (8)
  - Hair texture abnormal [Not Recovered/Not Resolved]
  - Erythema [Unknown]
  - Back pain [Unknown]
  - Infusion related reaction [Unknown]
  - Alopecia areata [Not Recovered/Not Resolved]
  - Dyspnoea [Unknown]
  - Madarosis [Not Recovered/Not Resolved]
  - Hair colour changes [Not Recovered/Not Resolved]

NARRATIVE: CASE EVENT DATE: 20140813
